FAERS Safety Report 9664512 (Version 2)
Quarter: 2013Q4

REPORT INFORMATION
  Report Type: Report from Study
  Country: JP (occurrence: JP)
  Receive Date: 20131101
  Receipt Date: 20131101
  Transmission Date: 20140711
  Serious: Yes (Death, Other)
  Sender: FDA-Public Use
  Company Number: JP-SA-THYM-1004104

PATIENT
  Age: 47 Year
  Sex: Male
  Weight: 59 kg

DRUGS (13)
  1. ANTI-THYMOCYTE GLOBULIN (RABBIT) [Suspect]
     Indication: APLASTIC ANAEMIA
     Dosage: 225 MG, QD
     Route: 065
     Dates: start: 20091015, end: 20091019
  2. METHYLPREDNISOLONE SODIUM SUCCINATE [Concomitant]
     Indication: PROPHYLAXIS
     Dosage: UNK
     Dates: start: 20091015, end: 20091019
  3. HYDROCORTISONE SODIUM SUCCINATE [Concomitant]
     Indication: PROPHYLAXIS
     Dosage: UNK
     Route: 065
     Dates: start: 20091015, end: 20091015
  4. CHLORPHENAMINE MALEATE [Concomitant]
     Indication: PROPHYLAXIS
     Dosage: UNK
     Dates: start: 20091015, end: 20091015
  5. CEFEPIME HYDROCHLORIDE [Concomitant]
     Indication: INFECTION PROPHYLAXIS
     Dosage: UNK
     Dates: start: 20091018, end: 20091029
  6. MEROPENEM TRIHYDRATE [Concomitant]
     Indication: INFECTION PROPHYLAXIS
     Dosage: UNK
     Dates: start: 20091028, end: 20091031
  7. CIPROFLOXACIN HYDROCHLORIDE [Concomitant]
     Indication: INFECTION PROPHYLAXIS
     Dosage: UNK
     Dates: start: 20091030, end: 20091102
  8. FILGRASTIM [Concomitant]
     Indication: APLASTIC ANAEMIA
     Dosage: UNK
     Dates: start: 20091124, end: 20091207
  9. LENOGRASTIM [Concomitant]
     Indication: APLASTIC ANAEMIA
     Dosage: UNK
     Dates: start: 20100205, end: 20100207
  10. LENOGRASTIM [Concomitant]
     Indication: APLASTIC ANAEMIA
     Dosage: UNK
     Dates: start: 20100302, end: 20100304
  11. CICLOSPORIN [Concomitant]
     Indication: APLASTIC ANAEMIA
     Dosage: UNK
     Dates: start: 20091107, end: 20110709
  12. LANSOPRAZOLE [Concomitant]
     Indication: PROPHYLAXIS
     Dosage: UNK
     Dates: start: 20091017, end: 20091122
  13. AMLODIPINE BESILATE [Concomitant]
     Indication: HYPERTENSION
     Dosage: UNK
     Dates: start: 20091017, end: 20091122

REACTIONS (7)
  - Acute myeloid leukaemia [Unknown]
  - Melaena [Unknown]
  - Pneumonia [Fatal]
  - Pain [Recovered/Resolved]
  - Diarrhoea [Recovered/Resolved]
  - Platelet count decreased [Unknown]
  - Herpes simplex [Recovered/Resolved]
